FAERS Safety Report 10253103 (Version 1)
Quarter: 2014Q2

REPORT INFORMATION
  Report Type: Spontaneous
  Country: US (occurrence: US)
  Receive Date: 20140623
  Receipt Date: 20140623
  Transmission Date: 20141212
  Serious: No
  Sender: FDA-Public Use
  Company Number: US-ZOGENIX, INC.-2011ZX000401

PATIENT
  Sex: Female
  Weight: 77.18 kg

DRUGS (6)
  1. SUMAVEL DOSEPRO [Suspect]
     Indication: MIGRAINE
  2. MARPLAN                            /00034601/ [Concomitant]
     Indication: PRODUCT USED FOR UNKNOWN INDICATION
  3. NORTRIPTYLINE [Concomitant]
     Indication: PRODUCT USED FOR UNKNOWN INDICATION
  4. SEROQUEL [Concomitant]
     Indication: PRODUCT USED FOR UNKNOWN INDICATION
  5. LOVASTATIN [Concomitant]
     Indication: BLOOD CHOLESTEROL
  6. SYNTHROID [Concomitant]
     Indication: THYROID THERAPY

REACTIONS (2)
  - Injection site pain [Recovered/Resolved]
  - Injection site bruising [Recovering/Resolving]
